FAERS Safety Report 9288905 (Version 1)
Quarter: 2013Q2

REPORT INFORMATION
  Report Type: Spontaneous
  Country: US (occurrence: US)
  Receive Date: 20130514
  Receipt Date: 20130514
  Transmission Date: 20140414
  Serious: No
  Sender: FDA-Public Use
  Company Number: US-TEVA-404805USA

PATIENT
  Sex: 0

DRUGS (2)
  1. NUVIGIL [Suspect]
  2. PROPRANOLOL [Suspect]
     Dosage: 60 MILLIGRAM DAILY;
     Route: 048

REACTIONS (2)
  - Heart rate decreased [Unknown]
  - Blood pressure decreased [Unknown]
